FAERS Safety Report 24165700 (Version 1)
Quarter: 2024Q3

REPORT INFORMATION
  Report Type: Spontaneous
  Country: US (occurrence: US)
  Receive Date: 20240802
  Receipt Date: 20240802
  Transmission Date: 20241017
  Serious: No
  Sender: ACCORD
  Company Number: US-Accord-364448

PATIENT
  Age: 41 Year
  Sex: Female

DRUGS (3)
  1. DOCETAXEL [Suspect]
     Active Substance: DOCETAXEL\DOCETAXEL ANHYDROUS
     Indication: Thymoma
     Dosage: 1 CYCLE ONLY
     Route: 065
     Dates: start: 20190604, end: 20190604
  2. TOPOTECAN [Suspect]
     Active Substance: TOPOTECAN HYDROCHLORIDE
     Indication: Thymoma
     Dates: start: 20190604, end: 20190604
  3. VINBLASTINE [Suspect]
     Active Substance: VINBLASTINE
     Indication: Thymoma
     Dates: start: 20190604, end: 20190604

REACTIONS (2)
  - Lacrimation increased [Not Recovered/Not Resolved]
  - Off label use [Unknown]

NARRATIVE: CASE EVENT DATE: 20190614
